FAERS Safety Report 15862999 (Version 1)
Quarter: 2019Q1

REPORT INFORMATION
  Report Type: Spontaneous
  Country: NL (occurrence: NL)
  Receive Date: 20190124
  Receipt Date: 20190124
  Transmission Date: 20190417
  Serious: Yes (Death)
  Sender: FDA-Public Use
  Company Number: NL-PFIZER INC-2019030408

PATIENT
  Age: 62 Year
  Sex: Female
  Weight: 57 kg

DRUGS (4)
  1. RANITIDINE. [Concomitant]
     Active Substance: RANITIDINE
  2. DEXA [DEXAMETHASONE] [Concomitant]
     Route: 042
  3. CLEMASTINE [Concomitant]
     Active Substance: CLEMASTINE
  4. PACLITAXEL. [Suspect]
     Active Substance: PACLITAXEL
     Indication: BREAST CANCER METASTATIC
     Dosage: 122 MG
     Route: 050
     Dates: start: 20181228, end: 20181228

REACTIONS (1)
  - Hypersensitivity [Fatal]

NARRATIVE: CASE EVENT DATE: 20181228
